FAERS Safety Report 5964893 (Version 23)
Quarter: 2013Q4

REPORT INFORMATION
  Report Type: Spontaneous
  Country: US (occurrence: US)
  Receive Date: 20060120
  Receipt Date: 20131219
  Transmission Date: 20140711
  Serious: Yes (Death, Hospitalization, Other)
  Sender: FDA-Public Use
  Company Number: PHEH2006US00998

PATIENT
  Age: 57 Year
  Sex: Male
  Weight: 90.7 kg

DRUGS (13)
  1. AREDIA [Suspect]
     Indication: PLASMA CELL MYELOMA
     Dosage: 90 MG, QMO
     Route: 042
     Dates: start: 1999, end: 200203
  2. ZOMETA [Suspect]
     Indication: PLASMA CELL MYELOMA
     Dosage: 4 MG, QMO
     Route: 042
     Dates: start: 2001
  3. ZOMETA [Suspect]
     Dosage: 4 MG, QMO
     Route: 042
     Dates: start: 20021216, end: 20050523
  4. ZOMETA [Suspect]
     Dosage: 4 MG, QMO
     Dates: end: 200512
  5. INTERFERON [Concomitant]
  6. PS 341 [Concomitant]
     Dates: start: 200302
  7. PS 341 [Concomitant]
     Dates: start: 200302
  8. CYCLOPHOSPHAMIDE [Concomitant]
     Dosage: 150 MG, BID
  9. DEXAMETHASONE [Concomitant]
     Dosage: 32 MG, QD
     Route: 048
  10. MELPHALAN [Concomitant]
  11. DECADRON [Concomitant]
     Dosage: 12 MG, Q12H
  12. ALLOPURINOL [Concomitant]
     Dosage: 300 MG, QD
     Route: 048
  13. THALOMID [Concomitant]
     Dosage: 200 MG, QD

REACTIONS (86)
  - Respiratory failure [Not Recovered/Not Resolved]
  - Chronic obstructive pulmonary disease [Unknown]
  - Atelectasis [Unknown]
  - Osteonecrosis of jaw [Not Recovered/Not Resolved]
  - Osteomyelitis [Not Recovered/Not Resolved]
  - Oral disorder [Not Recovered/Not Resolved]
  - Deformity [Unknown]
  - Bone disorder [Not Recovered/Not Resolved]
  - Soft tissue infection [Not Recovered/Not Resolved]
  - Pain [Not Recovered/Not Resolved]
  - Gingival erythema [Not Recovered/Not Resolved]
  - Purulent discharge [Not Recovered/Not Resolved]
  - Oral discomfort [Unknown]
  - Emotional distress [Unknown]
  - Oral candidiasis [Unknown]
  - Anxiety [Unknown]
  - General physical health deterioration [Unknown]
  - Swelling [Not Recovered/Not Resolved]
  - Osteopenia [Unknown]
  - Spinal deformity [Unknown]
  - Rib fracture [Unknown]
  - Compression fracture [Unknown]
  - Back pain [Unknown]
  - Cardiomegaly [Unknown]
  - Arteriosclerosis coronary artery [Unknown]
  - Neuropathy peripheral [Unknown]
  - Dehydration [Unknown]
  - Hypoalbuminaemia [Unknown]
  - Intervertebral disc protrusion [Unknown]
  - Atrophy [Unknown]
  - Osteoarthritis [Unknown]
  - Pancytopenia [Unknown]
  - Pleural effusion [Unknown]
  - Dizziness [Unknown]
  - Coagulopathy [Unknown]
  - Facet joint syndrome [Unknown]
  - Vertebral foraminal stenosis [Unknown]
  - Upper respiratory tract infection [Recovered/Resolved]
  - Pathological fracture [Unknown]
  - Pneumothorax [Unknown]
  - Insomnia [Unknown]
  - Tooth loss [Unknown]
  - Pulmonary fibrosis [Unknown]
  - Hypercholesterolaemia [Unknown]
  - Leukopenia [Unknown]
  - Spinal osteoarthritis [Unknown]
  - Oedema peripheral [Unknown]
  - Tongue ulceration [Unknown]
  - Exposed bone in jaw [Unknown]
  - Night sweats [Unknown]
  - Hypoacusis [Unknown]
  - Myalgia [Unknown]
  - Alopecia [Unknown]
  - Hepatosplenomegaly [Unknown]
  - Tachypnoea [Unknown]
  - Pneumonitis [Unknown]
  - Dyspnoea exertional [Unknown]
  - Muscular weakness [Unknown]
  - Intervertebral disc space narrowing [Unknown]
  - Bone pain [Unknown]
  - Paraesthesia [Unknown]
  - Hypoaesthesia [Unknown]
  - Cholecystitis acute [Unknown]
  - Gallbladder disorder [Unknown]
  - Hepatomegaly [Unknown]
  - Hepatic steatosis [Unknown]
  - Pain in jaw [Unknown]
  - Cardiac arrest [Fatal]
  - Streptococcal sepsis [Fatal]
  - Pyrexia [Fatal]
  - Chills [Fatal]
  - Diarrhoea [Fatal]
  - Malignant neoplasm progression [Fatal]
  - Agranulocytosis [Fatal]
  - Aplastic anaemia [Fatal]
  - Lung neoplasm malignant [Fatal]
  - Metastases to bone [Fatal]
  - Musculoskeletal pain [Fatal]
  - Mass [Fatal]
  - Neutropenia [Fatal]
  - Lung infiltration [Fatal]
  - Bone lesion [Fatal]
  - Neck pain [Fatal]
  - Pneumonia pneumococcal [Unknown]
  - Multi-organ failure [Not Recovered/Not Resolved]
  - Renal failure acute [Not Recovered/Not Resolved]
